FAERS Safety Report 14775834 (Version 4)
Quarter: 2020Q3

REPORT INFORMATION
  Report Type: Spontaneous
  Country: US (occurrence: US)
  Receive Date: 20180418
  Receipt Date: 20200828
  Transmission Date: 20201102
  Serious: Yes (Death, Hospitalization)
  Sender: FDA-Public Use
  Company Number: US-JNJFOC-20180420755

PATIENT
  Age: 84 Year
  Sex: Male

DRUGS (8)
  1. MONTELUKAST [Concomitant]
     Active Substance: MONTELUKAST SODIUM
  2. XARELTO [Suspect]
     Active Substance: RIVAROXABAN
     Indication: ATRIAL FIBRILLATION
  3. XARELTO [Suspect]
     Active Substance: RIVAROXABAN
     Indication: CEREBROVASCULAR ACCIDENT PROPHYLAXIS
     Route: 048
     Dates: start: 20120329, end: 20150603
  4. DIGOXIN. [Concomitant]
     Active Substance: DIGOXIN
  5. FLUTICASON [Concomitant]
     Active Substance: FLUTICASONE
  6. FUROSEMIDE. [Concomitant]
     Active Substance: FUROSEMIDE
  7. COLCHICINE. [Concomitant]
     Active Substance: COLCHICINE
  8. XARELTO [Suspect]
     Active Substance: RIVAROXABAN
     Indication: THROMBOSIS PROPHYLAXIS

REACTIONS (2)
  - Cerebrovascular accident [Fatal]
  - Gastrointestinal haemorrhage [Fatal]

NARRATIVE: CASE EVENT DATE: 20150603
